FAERS Safety Report 4729719-X (Version None)
Quarter: 2005Q3

REPORT INFORMATION
  Report Type: 
  Country: None (occurrence: None)
  Receive Date: 20050801
  Receipt Date: 20050428
  Transmission Date: 20060218
  Serious: Yes (Death, Other)
  Sender: FDA-Public Use
  Company Number: US-MERCK-0505USA00232

PATIENT
  Age: 74 Year
  Sex: Male

DRUGS (5)
  1. VIOXX [Suspect]
     Route: 048
     Dates: start: 20021106, end: 20030421
  2. VERAPAMIL [Concomitant]
     Route: 065
  3. ZOCOR [Concomitant]
     Route: 048
  4. FLUNISOLIDE [Concomitant]
     Route: 065
  5. ASPIRIN [Concomitant]
     Route: 048
     Dates: start: 19810101, end: 20030421

REACTIONS (11)
  - BENIGN PROSTATIC HYPERPLASIA [None]
  - CARDIAC VALVE DISEASE [None]
  - DEATH [None]
  - DYSPNOEA [None]
  - HYPERLIPIDAEMIA [None]
  - HYPERTENSION [None]
  - MYOCARDIAL INFARCTION [None]
  - MYOCARDIAL ISCHAEMIA [None]
  - ORTHOPNOEA [None]
  - VULVAL DISORDER [None]
  - WEIGHT INCREASED [None]
